FAERS Safety Report 12105575 (Version 1)
Quarter: 2016Q1

REPORT INFORMATION
  Report Type: Spontaneous
  Country: ES (occurrence: ES)
  Receive Date: 20160223
  Receipt Date: 20160223
  Transmission Date: 20160526
  Serious: Yes (Hospitalization)
  Sender: FDA-Public Use
  Company Number: ES-ASTRAZENECA-2016SE16424

PATIENT
  Age: 89 Year

DRUGS (7)
  1. ORFIDAL [Concomitant]
     Active Substance: LORAZEPAM
  2. NOLOTIL [Concomitant]
     Active Substance: METAMIZOLE
     Dosage: AS REQUIRED
  3. XARELTO [Concomitant]
     Active Substance: RIVAROXABAN
  4. ATACAND PLUS [Suspect]
     Active Substance: CANDESARTAN CILEXETIL\HYDROCHLOROTHIAZIDE
     Indication: HYPERTENSION
     Dosage: 32 MG/12.5 MG, 1 DF DAILY
     Route: 048
     Dates: start: 2014, end: 20150521
  5. THIAZIDE [Concomitant]
     Active Substance: UNSPECIFIED INGREDIENT
  6. PARACETAMOL [Concomitant]
     Active Substance: ACETAMINOPHEN
     Dosage: AS REQUIRED
  7. AMLODIPINE [Concomitant]
     Active Substance: AMLODIPINE BESYLATE

REACTIONS (6)
  - Dehydration [Unknown]
  - Hypokalaemia [Recovered/Resolved]
  - Vitamin B12 deficiency [Unknown]
  - Lumbar spinal stenosis [Unknown]
  - Pituitary enlargement [Unknown]
  - Hypoaldosteronism [Unknown]

NARRATIVE: CASE EVENT DATE: 20150521
